FAERS Safety Report 6146245-4 (Version None)
Quarter: 2009Q2

REPORT INFORMATION
  Report Type: 
  Country: None (occurrence: None)
  Receive Date: 20090407
  Receipt Date: 20090331
  Transmission Date: 20091009
  Serious: Yes (Hospitalization)
  Sender: FDA-Public Use
  Company Number: DE-ABBOTT-09P-062-0565579-00

PATIENT
  Sex: Male
  Weight: 63 kg

DRUGS (5)
  1. KALETRA [Suspect]
     Indication: HIV INFECTION
     Route: 048
     Dates: start: 20080721
  2. TRUVADA [Concomitant]
     Indication: HIV INFECTION
     Route: 048
     Dates: start: 20080721
  3. LOPERAMIDE [Concomitant]
     Indication: DIARRHOEA
     Route: 048
  4. FLUCONAZOLE [Concomitant]
     Indication: PROPHYLAXIS
     Route: 048
     Dates: start: 20080609, end: 20081211
  5. NEXIUM [Concomitant]
     Indication: DRUG USE FOR UNKNOWN INDICATION
     Route: 048

REACTIONS (6)
  - ALCOHOL USE [None]
  - DEHYDRATION [None]
  - DYSPHAGIA [None]
  - GASTRITIS [None]
  - OESOPHAGEAL FOOD IMPACTION [None]
  - STUPOR [None]
